FAERS Safety Report 10308495 (Version 2)
Quarter: 2014Q3

REPORT INFORMATION
  Report Type: Report from Study
  Country: DE (occurrence: DE)
  Receive Date: 20140716
  Receipt Date: 20140815
  Transmission Date: 20150326
  Serious: Yes (Other)
  Sender: FDA-Public Use
  Company Number: PHHY2014DE086886

PATIENT
  Sex: Male
  Weight: 84 kg

DRUGS (18)
  1. ULTIBRO BREEZHALER [Suspect]
     Active Substance: GLYCOPYRRONIUM\INDACATEROL
     Indication: CHRONIC OBSTRUCTIVE PULMONARY DISEASE
     Dosage: 1 DF, QD
     Route: 055
     Dates: start: 20131205
  2. NO TREATMENT RECEIVED [Suspect]
     Active Substance: UNSPECIFIED INGREDIENT
     Dosage: 44 UG, QD
     Route: 055
     Dates: start: 20130124, end: 20131205
  3. CARBAMAZEPINE. [Concomitant]
     Active Substance: CARBAMAZEPINE
     Dosage: 0.5 DF, QD
  4. FURO [Concomitant]
     Dosage: 0.5 DF, QD
  5. OMEPRAZOLE. [Concomitant]
     Active Substance: OMEPRAZOLE
     Dosage: 1 DF, PRN
  6. DAXAS [Concomitant]
     Active Substance: ROFLUMILAST
     Dosage: 500 MG, QD
  7. TRAMADOL [Concomitant]
     Active Substance: TRAMADOL
  8. AMLODIPINE [Concomitant]
     Active Substance: AMLODIPINE BESYLATE
     Dosage: 0.5 DF, QD
  9. MARCUMAR [Concomitant]
     Active Substance: PHENPROCOUMON
  10. VOTUM                              /03076201/ [Concomitant]
     Active Substance: ACETIC ACID\DELTAMETHRIN
  11. PHENPRO [Concomitant]
  12. DIGIMERCK [Concomitant]
     Active Substance: DIGITOXIN
     Dosage: 0.5 DF, QD
  13. SIMVASTATIN. [Concomitant]
     Active Substance: SIMVASTATIN
     Dosage: 1 DF, UNK
  14. MIFLONIDE [Suspect]
     Active Substance: BUDESONIDE
     Dosage: 2 DF, QD
     Dates: start: 20100818
  15. AMIODARONE [Concomitant]
     Active Substance: AMIODARONE
     Dosage: 1 DF, QD
  16. BEROTEC [Concomitant]
     Active Substance: FENOTEROL HYDROBROMIDE
     Dosage: 100 UG, PRN
     Dates: start: 20011023
  17. CARVEDILOL. [Concomitant]
     Active Substance: CARVEDILOL
  18. JUFORMIN [Concomitant]
     Dosage: 3 DF, QD

REACTIONS (1)
  - Pneumonia [Recovered/Resolved]

NARRATIVE: CASE EVENT DATE: 201403
